FAERS Safety Report 4289132-9 (Version None)
Quarter: 2004Q1

REPORT INFORMATION
  Report Type: 
  Country: None (occurrence: None)
  Receive Date: 20040210
  Receipt Date: 20040202
  Transmission Date: 20041129
  Serious: Yes (Other)
  Sender: FDA-Public Use
  Company Number: PHBS2004JP01774

PATIENT
  Age: 21 Year
  Sex: Female

DRUGS (6)
  1. CYCLOSPORINE [Suspect]
     Indication: BONE MARROW TRANSPLANT
     Route: 065
  2. LAMIVUDINE [Concomitant]
  3. CYCLOPHOSPHAMIDE [Concomitant]
     Dosage: 50 MG/KG/DAY
  4. ANTITHYMOCYTE IMMUNOGLOBULIN [Concomitant]
     Dosage: 2.5 MG/KG/DAY
  5. METHOTREXATE [Concomitant]
  6. TACROLIMUS [Concomitant]

REACTIONS (4)
  - BLOOD STEM CELL TRANSPLANT FAILURE [None]
  - HEPATITIS B [None]
  - PANCYTOPENIA [None]
  - TOXIC INDUCED ENCEPHALOPATHY [None]
